FAERS Safety Report 19239605 (Version 1)
Quarter: 2021Q2

REPORT INFORMATION
  Report Type: Spontaneous
  Country: PL (occurrence: PL)
  Receive Date: 20210510
  Receipt Date: 20210510
  Transmission Date: 20210717
  Serious: Yes (Other)
  Sender: FDA-Public Use
  Company Number: PL-PFIZER INC-2021472811

PATIENT
  Age: 66 Year
  Sex: Male
  Weight: 84 kg

DRUGS (2)
  1. SUTENT [Suspect]
     Active Substance: SUNITINIB MALATE
     Dosage: 37.5 MG, CYCLIC; COURSE 3?6
  2. SUTENT [Suspect]
     Active Substance: SUNITINIB MALATE
     Indication: RENAL CANCER
     Dosage: 50 MG, CYCLIC; COURSE 1?2
     Route: 048

REACTIONS (15)
  - Thrombocytopenia [Unknown]
  - Decreased appetite [Unknown]
  - Ageusia [Unknown]
  - Dyspepsia [Unknown]
  - Anaemia [Unknown]
  - Fatigue [Unknown]
  - Syncope [Unknown]
  - Leukopenia [Unknown]
  - Pulmonary embolism [Unknown]
  - Blood thyroid stimulating hormone increased [Unknown]
  - Dyspnoea exertional [Unknown]
  - Blood thyroid stimulating hormone decreased [Unknown]
  - Aspartate aminotransferase increased [Unknown]
  - Diarrhoea [Unknown]
  - Chronic kidney disease [Unknown]
